FAERS Safety Report 21131891 (Version 2)
Quarter: 2022Q3

REPORT INFORMATION
  Report Type: Spontaneous
  Country: JP (occurrence: JP)
  Receive Date: 20220726
  Receipt Date: 20220810
  Transmission Date: 20221026
  Serious: Yes (Death, Other)
  Sender: FDA-Public Use
  Company Number: JP-BAYER-2022A102543

PATIENT
  Age: 8 Decade
  Sex: Male

DRUGS (7)
  1. IOPAMIRON [Suspect]
     Active Substance: IOPAMIDOL
     Indication: Computerised tomogram coronary artery
     Dosage: 60 ML, SINGLE AT 5ML/SEC
  2. CARVEDILOL [Concomitant]
     Active Substance: CARVEDILOL
  3. ASPIRIN [Concomitant]
     Active Substance: ASPIRIN
  4. ATORVASTATIN [Concomitant]
     Active Substance: ATORVASTATIN
  5. RABEPRAZOLE SODIUM [Concomitant]
     Active Substance: RABEPRAZOLE SODIUM
  6. CILOSTAZOL [Concomitant]
     Active Substance: CILOSTAZOL
  7. FUROSEMIDE [Concomitant]
     Active Substance: FUROSEMIDE

REACTIONS (1)
  - Anaphylactic shock [Fatal]
